FAERS Safety Report 8576935-5 (Version None)
Quarter: 2012Q3

REPORT INFORMATION
  Report Type: 
  Country: None (occurrence: None)
  Receive Date: 20120807
  Receipt Date: 20120725
  Transmission Date: 20120928
  Serious: Yes (Other)
  Sender: FDA-Public Use
  Company Number: GB-ROCHE-1093298

PATIENT
  Sex: Female
  Weight: 65.2 kg

DRUGS (9)
  1. MABTHERA [Suspect]
     Indication: B-CELL LYMPHOMA
     Route: 042
     Dates: start: 20120105
  2. MABTHERA [Suspect]
     Route: 058
     Dates: start: 20120308
  3. MABTHERA [Suspect]
     Route: 058
     Dates: start: 20120126
  4. MABTHERA [Suspect]
     Route: 058
     Dates: start: 20120516
  5. MABTHERA [Suspect]
     Route: 058
     Dates: start: 20120607
  6. MABTHERA [Suspect]
     Route: 058
     Dates: start: 20120216
  7. MABTHERA [Suspect]
     Route: 058
     Dates: start: 20120329
  8. MABTHERA [Suspect]
     Route: 058
     Dates: start: 20120419
  9. HYDROCORTISONE [Concomitant]
     Indication: ADVERSE DRUG REACTION
     Dates: start: 20120105, end: 20120105

REACTIONS (1)
  - ADVERSE DRUG REACTION [None]
